FAERS Safety Report 9157230 (Version 1)
Quarter: 2013Q1

REPORT INFORMATION
  Report Type: Spontaneous
  Country: PT (occurrence: None)
  Receive Date: 20130212
  Receipt Date: 20130212
  Transmission Date: 20140127
  Serious: Yes (Hospitalization)
  Sender: FDA-Public Use
  Company Number: FK201300404

PATIENT
  Age: 57 Year
  Sex: Male

DRUGS (2)
  1. AMIODARONE HCL [Suspect]
     Indication: ATRIAL FLUTTER
     Dosage: INFUSED OVER 1 HOUR
     Route: 042
  2. AMIODARONE HCL [Suspect]
     Dosage: INFUSED OVER 1 HOUR
     Route: 042

REACTIONS (7)
  - Acute respiratory failure [None]
  - Acute lung injury [None]
  - Tachypnoea [None]
  - Haemodynamic instability [None]
  - Crepitations [None]
  - Pulmonary oedema [None]
  - Pulmonary haemorrhage [None]
